FAERS Safety Report 9154692 (Version 2)
Quarter: 2013Q1

REPORT INFORMATION
  Report Type: Spontaneous
  Country: US (occurrence: None)
  Receive Date: 20130201
  Receipt Date: 20130213
  Transmission Date: 20140127
  Serious: Yes (Hospitalization)
  Sender: FDA-Public Use
  Company Number: QSC-2013-0015

PATIENT
  Age: 46 Year
  Sex: Male

DRUGS (8)
  1. H.P. ACTHAR GEL (ADRENOCORTICOTROPIC HORMONE) GEL FOR INJECTION, 80U/ML [Suspect]
     Indication: NEPHROTIC SYNDROME
     Route: 058
     Dates: start: 201212
  2. LASIX (FUROSEMDIE) [Concomitant]
  3. SPIRONOLACTONE (SPIRONOLACTONE) [Concomitant]
  4. BACTRIM [Concomitant]
  5. OXYCODONE (OXYCODONE) [Concomitant]
  6. WARFARIN (WARFARIN) [Concomitant]
  7. TAMSULOSIN (TAMSULOSIN) [Concomitant]
  8. COZAAR (LOSARTAN POTASSIUM) [Concomitant]

REACTIONS (8)
  - Pneumothorax [None]
  - Infection [None]
  - Hydropneumothorax [None]
  - Empyema [None]
  - Bacterial infection [None]
  - Atrial fibrillation [None]
  - Urinary retention [None]
  - Nephrotic syndrome [None]
